FAERS Safety Report 5590653-7 (Version None)
Quarter: 2008Q1

REPORT INFORMATION
  Report Type: 
  Country: None (occurrence: None)
  Receive Date: 20080114
  Receipt Date: 20080108
  Transmission Date: 20080703
  Serious: Yes (Other)
  Sender: FDA-Public Use
  Company Number: IR-MERCK-0801USA01833

PATIENT
  Age: 25 Year
  Sex: Male

DRUGS (2)
  1. TIMOPTIC [Suspect]
     Indication: PHOTOPHOBIA
     Route: 047
     Dates: start: 19991101
  2. TRUSOPT [Suspect]
     Indication: INTRAOCULAR PRESSURE INCREASED
     Route: 047

REACTIONS (3)
  - CORNEAL DECOMPENSATION [None]
  - INTRAOCULAR PRESSURE INCREASED [None]
  - UVEITIS [None]
